FAERS Safety Report 16745186 (Version 3)
Quarter: 2019Q3

REPORT INFORMATION
  Report Type: Spontaneous
  Country: US (occurrence: US)
  Receive Date: 20190827
  Receipt Date: 20190917
  Transmission Date: 20191005
  Serious: No
  Sender: FDA-Public Use
  Company Number: US-PFIZER INC-2019363911

PATIENT
  Age: 86 Year
  Sex: Female
  Weight: 61 kg

DRUGS (3)
  1. LETROZOLE. [Suspect]
     Active Substance: LETROZOLE
     Indication: BREAST CANCER METASTATIC
     Dosage: 2.5 MG, DAILY
     Dates: start: 201808, end: 20190816
  2. IBRANCE [Suspect]
     Active Substance: PALBOCICLIB
     Indication: BREAST CANCER FEMALE
  3. IBRANCE [Suspect]
     Active Substance: PALBOCICLIB
     Indication: BREAST CANCER METASTATIC
     Dosage: 125 MG, CYCLIC [DAILY FOR 21 DAYS THEN 7 DAYS OFF]
     Dates: start: 201808, end: 20190816

REACTIONS (3)
  - Pain in extremity [Unknown]
  - Neoplasm progression [Unknown]
  - Pyrexia [Unknown]

NARRATIVE: CASE EVENT DATE: 201908
